FAERS Safety Report 19190328 (Version 1)
Quarter: 2021Q2

REPORT INFORMATION
  Report Type: Spontaneous
  Country: US (occurrence: US)
  Receive Date: 20210428
  Receipt Date: 20210428
  Transmission Date: 20210717
  Serious: Yes (Life-Threatening, Hospitalization, Other)
  Sender: FDA-Public Use
  Company Number: US-MYLANLABS-2021M1024977

PATIENT
  Age: 29 Year
  Sex: Male

DRUGS (10)
  1. GEMCITABINE. [Suspect]
     Active Substance: GEMCITABINE
     Dosage: 700 MILLIGRAM/SQ. METER RECEIVED OVER 25 DAYS
  2. OXALIPLATIN. [Suspect]
     Active Substance: OXALIPLATIN
     Indication: CHOLANGIOCARCINOMA
     Route: 065
  3. FLUOROURACIL. [Suspect]
     Active Substance: FLUOROURACIL
     Indication: CHOLANGIOCARCINOMA
     Route: 065
  4. FOLINIC ACID [Suspect]
     Active Substance: LEUCOVORIN
     Indication: CHOLANGIOCARCINOMA
     Route: 065
  5. ECULIZUMAB [Concomitant]
     Active Substance: ECULIZUMAB
     Dosage: 1200 MILLIGRAM, BIWEEKLY ON WEEK 5 FOR 2 DOSES
     Route: 042
  6. CISPLATIN. [Concomitant]
     Active Substance: CISPLATIN
     Indication: CHOLANGIOCARCINOMA
     Dosage: 25 MILLIGRAM/SQ. METER, CYCLE ON DAYS 1 AND 8 OF EACH 21?DAY CYCLE FOR A TOTAL OF 9 CYCLES
     Route: 042
  7. GEMCITABINE. [Suspect]
     Active Substance: GEMCITABINE
     Dosage: 500 MILLIGRAM/SQ. METER RECEIVED OVER 25 DAYS
  8. GEMCITABINE. [Suspect]
     Active Substance: GEMCITABINE
     Indication: CHOLANGIOCARCINOMA
     Dosage: 1000 MILLIGRAM/SQ. METER, CYCLE ON DAYS 1 AND 8 OF EACH 21?DAY CYCLE FOR A TOTAL OF 9 CYCLES
     Route: 042
  9. ECULIZUMAB [Concomitant]
     Active Substance: ECULIZUMAB
     Indication: THROMBOTIC MICROANGIOPATHY
     Dosage: 900 MILLIGRAM, QW 4 DOSES
     Route: 042
  10. GEMCITABINE. [Suspect]
     Active Substance: GEMCITABINE
     Dosage: 800 MILLIGRAM/SQ. METER RECEIVED OVER 25 DAYS

REACTIONS (7)
  - Myelosuppression [Recovering/Resolving]
  - Drug ineffective [Unknown]
  - Nephrolithiasis [Unknown]
  - Thrombotic microangiopathy [Recovering/Resolving]
  - Ascites [Unknown]
  - Splenomegaly [Unknown]
  - Hydronephrosis [Unknown]
